FAERS Safety Report 5954372-7 (Version None)
Quarter: 2008Q4

REPORT INFORMATION
  Report Type: 
  Country: None (occurrence: None)
  Receive Date: 20081112
  Receipt Date: 20081105
  Transmission Date: 20090506
  Serious: Yes (Other)
  Sender: FDA-Public Use
  Company Number: 2008SP022475

PATIENT
  Age: 30 Year
  Sex: Female

DRUGS (2)
  1. TEMODAL [Suspect]
     Indication: ASTROCYTOMA
     Dosage: 50 MG; ;PO
     Route: 048
  2. CELEBREX [Concomitant]

REACTIONS (1)
  - OSTEONECROSIS [None]
